FAERS Safety Report 24149480 (Version 1)
Quarter: 2024Q3

REPORT INFORMATION
  Report Type: Spontaneous
  Country: US (occurrence: US)
  Receive Date: 20240730
  Receipt Date: 20240730
  Transmission Date: 20241017
  Serious: No
  Sender: ROCHE
  Company Number: US-ROCHE-10000037834

PATIENT
  Sex: Female

DRUGS (2)
  1. LUCENTIS [Suspect]
     Active Substance: RANIBIZUMAB
     Indication: Osteoarthritis
     Dosage: STRENGTH:0.5MG 0.05ML
     Route: 042
  2. LUCENTIS [Suspect]
     Active Substance: RANIBIZUMAB

REACTIONS (3)
  - Off label use [Unknown]
  - Conjunctivitis [Unknown]
  - Eye infection [Unknown]
